FAERS Safety Report 11523040 (Version 1)
Quarter: 2015Q3

REPORT INFORMATION
  Report Type: Spontaneous
  Country: US (occurrence: US)
  Receive Date: 20150918
  Receipt Date: 20150918
  Transmission Date: 20151125
  Serious: No
  Sender: FDA-Public Use
  Company Number: US-ROCHE-673785

PATIENT
  Age: 21 Year
  Sex: Female

DRUGS (4)
  1. RIBAVIRIN. [Suspect]
     Active Substance: RIBAVIRIN
     Indication: HEPATITIS C
     Dosage: MISSED DOSE
     Route: 065
  2. RIBAVIRIN. [Suspect]
     Active Substance: RIBAVIRIN
     Route: 065
  3. RIBAVIRIN. [Suspect]
     Active Substance: RIBAVIRIN
     Dosage: FORM: PILLS, DIVIDED DOSES.
     Route: 065
  4. PEGASYS [Suspect]
     Active Substance: PEGINTERFERON ALFA-2A
     Indication: HEPATITIS C
     Dosage: FORM: PRE-FILLED SYRINGE.
     Route: 065

REACTIONS (6)
  - Pruritus [Recovering/Resolving]
  - Scratch [Unknown]
  - Eye pain [Not Recovered/Not Resolved]
  - Skin mass [Unknown]
  - Drug dose omission [Unknown]
  - Rash papular [Unknown]

NARRATIVE: CASE EVENT DATE: 20091124
